FAERS Safety Report 5127219-9 (Version None)
Quarter: 2006Q4

REPORT INFORMATION
  Report Type: 
  Country: None (occurrence: None)
  Receive Date: 20061010
  Receipt Date: 20060925
  Transmission Date: 20070319
  Serious: No
  Sender: FDA-Public Use
  Company Number: SPV1-2006-00869

PATIENT
  Age: 48 Year
  Sex: Male
  Weight: 132.9 kg

DRUGS (8)
  1. CARBATROL [Suspect]
     Indication: CONVULSION
     Dosage: 1200 MG DAILY, ORAL
     Route: 048
     Dates: start: 20060701, end: 20060913
  2. CARBATROL [Suspect]
     Indication: CONVULSION
     Dosage: 1200 MG DAILY, ORAL
     Route: 048
     Dates: start: 20060914
  3. COUMADIN [Suspect]
     Indication: DEEP VEIN THROMBOSIS
     Dosage: 11 + 900 + 15MG DAILY, UNK - SEE IMAGE
     Dates: start: 20050901
  4. COUMADIN [Suspect]
     Indication: DEEP VEIN THROMBOSIS
     Dosage: 11 + 900 + 15MG DAILY, UNK - SEE IMAGE
     Dates: start: 20060701
  5. KEPRA (LEVETIRACETAM( [Concomitant]
  6. TOPAMAX [Concomitant]
  7. DILTIAZEM    /00489702/(DILTIAZEM HYDROCHLORIDE) [Concomitant]
  8. VYTORIN (SIMVASTATIN, EZETIMIBE) [Concomitant]

REACTIONS (5)
  - CONDITION AGGRAVATED [None]
  - DRUG INTERACTION [None]
  - INTERNATIONAL NORMALISED RATIO DECREASED [None]
  - SOMNOLENCE [None]
  - TREMOR [None]
